FAERS Safety Report 11559892 (Version 2)
Quarter: 2015Q4

REPORT INFORMATION
  Report Type: Spontaneous
  Country: EG (occurrence: EG)
  Receive Date: 20150928
  Receipt Date: 20151002
  Transmission Date: 20160304
  Serious: Yes (Hospitalization)
  Sender: FDA-Public Use
  Company Number: EG-NOVOPROD-463852

PATIENT
  Age: 64 Year
  Sex: Female
  Weight: 85 kg

DRUGS (13)
  1. MIXTARD HUMAN 70/30 [Suspect]
     Active Substance: INSULIN HUMAN
     Indication: DIABETES MELLITUS
     Dosage: 60 IU, QD (40IU AT MORNING + 20IU AT NIGHT, SOMETIMES SHE DON^T TAKE THE NIGHT DOSE)
     Route: 058
  2. LASILACTONE [Concomitant]
     Active Substance: FUROSEMIDE\SPIRONOLACTONE
     Indication: HYPERTENSION
  3. CORDARON [Concomitant]
     Active Substance: AMIODARONE HYDROCHLORIDE
     Indication: CARDIAC DISORDER
     Dosage: UNK
     Route: 048
     Dates: start: 20150528
  4. CIDOPHAGE [Concomitant]
     Indication: DIABETES MELLITUS
     Dosage: UNK, (ONCE DAILY, SINGLE, IRREGULAR USE) STARTED 15 YEARS AGO
     Route: 048
  5. ASPOCID [Concomitant]
     Indication: CARDIAC DISORDER
     Dosage: UNK, SINGLE
     Route: 048
     Dates: start: 20150528
  6. LASILACTONE [Concomitant]
     Active Substance: FUROSEMIDE\SPIRONOLACTONE
     Indication: CARDIAC DISORDER
     Dosage: UNK, SINGLE
     Route: 048
     Dates: start: 20150528
  7. LANOXIN [Concomitant]
     Active Substance: DIGOXIN
     Indication: CARDIAC DISORDER
     Dosage: 0.5 TAB OD (EXCEPT FRIDAY)
     Route: 048
     Dates: start: 20150528
  8. LANOXIN [Concomitant]
     Active Substance: DIGOXIN
     Indication: HYPERTENSION
  9. NOVOMIX 30 FLEXPEN [Suspect]
     Active Substance: INSULIN ASPART
     Indication: DIABETES MELLITUS
     Dosage: 50 IU, QD (25IU AT MORNING + 25IU AT NIGHT)
     Route: 058
     Dates: start: 201506
  10. CAPOTEN [Concomitant]
     Active Substance: CAPTOPRIL
     Indication: HYPERTENSION
     Dosage: UNK, SINGLE (STARTED 15 YEARS AGO)
     Route: 048
     Dates: end: 20150522
  11. COBAL F [Concomitant]
     Indication: NEURITIS
     Dosage: UNK, THRICE DAILY
     Route: 048
     Dates: start: 20150528
  12. ASPOCID [Concomitant]
     Indication: HYPERTENSION
  13. CORDARON [Concomitant]
     Active Substance: AMIODARONE HYDROCHLORIDE
     Indication: HYPERTENSION

REACTIONS (5)
  - Treatment noncompliance [Unknown]
  - Dyspnoea [Not Recovered/Not Resolved]
  - Blood glucose increased [Not Recovered/Not Resolved]
  - Cough [Not Recovered/Not Resolved]
  - Blood glucose increased [Not Recovered/Not Resolved]

NARRATIVE: CASE EVENT DATE: 20150522
